FAERS Safety Report 9956036 (Version 1)
Quarter: 2014Q1

REPORT INFORMATION
  Report Type: Report from Study
  Country: US (occurrence: US)
  Receive Date: 20140304
  Receipt Date: 20140304
  Transmission Date: 20141002
  Serious: No
  Sender: FDA-Public Use
  Company Number: US-ABBVIE-13P-163-1085487-00

PATIENT
  Age: 69 Year
  Sex: Female

DRUGS (4)
  1. HUMIRA [Suspect]
     Indication: ANKYLOSING SPONDYLITIS
     Dates: start: 201303
  2. NEXIUM [Concomitant]
     Indication: GASTROOESOPHAGEAL REFLUX DISEASE
  3. WARFARIN [Concomitant]
     Indication: COAGULOPATHY
     Dosage: 1.5 PILLS
  4. FUROSEMIDE [Concomitant]
     Indication: BLOOD PRESSURE

REACTIONS (1)
  - Injection site pain [Recovered/Resolved]
